FAERS Safety Report 6927634-4 (Version None)
Quarter: 2010Q3

REPORT INFORMATION
  Report Type: 
  Country: None (occurrence: None)
  Receive Date: 20100817
  Receipt Date: 20100804
  Transmission Date: 20110219
  Serious: Yes (Other)
  Sender: FDA-Public Use
  Company Number: PHHY2010CA37637

PATIENT
  Sex: Female

DRUGS (2)
  1. SANDOSTATIN LAR [Suspect]
     Indication: NEUROENDOCRINE CARCINOMA
     Dosage: 20 MG, EVERY 4 WEEKS
     Route: 030
     Dates: start: 20091123
  2. RADIATION TREATMENT [Concomitant]

REACTIONS (5)
  - BACK PAIN [None]
  - COCCYDYNIA [None]
  - FATIGUE [None]
  - LETHARGY [None]
  - SWELLING [None]
